FAERS Safety Report 23813525 (Version 1)
Quarter: 2024Q2

REPORT INFORMATION
  Report Type: Spontaneous
  Country: FR (occurrence: FR)
  Receive Date: 20240503
  Receipt Date: 20240503
  Transmission Date: 20240716
  Serious: Yes (Other)
  Sender: FDA-Public Use
  Company Number: FR-TEVA-VS-3191109

PATIENT
  Age: 88 Year
  Sex: Male

DRUGS (1)
  1. CIPROFLOXACIN [Suspect]
     Active Substance: CIPROFLOXACIN
     Indication: Urinary tract infection
     Route: 065
     Dates: end: 20240417

REACTIONS (3)
  - Ear disorder [Recovered/Resolved]
  - Blood urine present [Recovered/Resolved]
  - Head discomfort [Recovered/Resolved]
